FAERS Safety Report 21466178 (Version 2)
Quarter: 2022Q4

REPORT INFORMATION
  Report Type: Spontaneous
  Country: US (occurrence: US)
  Receive Date: 20221017
  Receipt Date: 20221207
  Transmission Date: 20230112
  Serious: Yes (Hospitalization, Other)
  Sender: FDA-Public Use
  Company Number: US-PHARMING-PHAUS2022000698

PATIENT

DRUGS (3)
  1. RUCONEST [Suspect]
     Active Substance: HUMAN C1-ESTERASE INHIBITOR
     Indication: Hereditary angioedema
     Dosage: 4200 IU, AS NEEDED
     Route: 042
     Dates: start: 20151009
  2. RUCONEST [Suspect]
     Active Substance: HUMAN C1-ESTERASE INHIBITOR
     Indication: Pharyngeal swelling
  3. TYVASO [Concomitant]
     Active Substance: TREPROSTINIL
     Indication: Product used for unknown indication
     Dosage: INHALE THREE BREATHS FOUR TIMES DAILY, INCREASE BY THREE BREATHS WEEKLY IF TOLERATED UNTIL TARGET DO
     Route: 055

REACTIONS (8)
  - Rectal haemorrhage [Unknown]
  - Impaired gastric emptying [Unknown]
  - Oral surgery [Unknown]
  - Therapeutic procedure [Unknown]
  - Pharyngeal swelling [Not Recovered/Not Resolved]
  - Chronic gastritis [Unknown]
  - Tendon rupture [Unknown]
  - Drug ineffective for unapproved indication [Unknown]

NARRATIVE: CASE EVENT DATE: 20220915
